FAERS Safety Report 9034352 (Version 2)
Quarter: 2013Q1

REPORT INFORMATION
  Report Type: Spontaneous
  Country: US (occurrence: None)
  Receive Date: 20130111
  Receipt Date: 20130307
  Transmission Date: 20140127
  Serious: Yes (Other)
  Sender: FDA-Public Use
  Company Number: AUR-APL-2013-00033

PATIENT
  Age: 81 Year
  Sex: Female
  Weight: 50.8 kg

DRUGS (8)
  1. ALENDRONIC ACID [Suspect]
     Indication: OSTEOPOROSIS
     Route: 048
     Dates: start: 200405, end: 20121216
  2. PRILOSEC [Concomitant]
  3. MELLARIL (THIORIDAZINE) [Concomitant]
  4. SPIRIVA (TIOTROPIUM BROMIDE) [Concomitant]
  5. MOEXITRAL [Concomitant]
  6. TRILOSEC [Concomitant]
  7. AMLODIPINE (AMLODIPINE) [Concomitant]
  8. TYLENOL (PARACETAMOL) [Concomitant]

REACTIONS (5)
  - Tooth loss [None]
  - Pain in jaw [None]
  - Osteonecrosis of jaw [None]
  - Yawning [None]
  - Unevaluable event [None]
